FAERS Safety Report 6492451-9 (Version None)
Quarter: 2009Q4

REPORT INFORMATION
  Report Type: 
  Country: None (occurrence: None)
  Receive Date: 20091214
  Receipt Date: 20091207
  Transmission Date: 20100525
  Serious: Yes (Other)
  Sender: FDA-Public Use
  Company Number: US-PFIZER INC-2005126394

PATIENT
  Sex: Female
  Weight: 69.841 kg

DRUGS (9)
  1. PROVERA [Suspect]
     Indication: HORMONE REPLACEMENT THERAPY
     Dosage: 2.5 UNK, UNK
     Route: 048
     Dates: start: 19940801, end: 20020301
  2. MEDROXYPROGESTERONE AND MEDROXYPROGESTERONE ACETATE [Suspect]
     Indication: HORMONE REPLACEMENT THERAPY
     Dosage: 2.5 UNK, UNK
     Route: 048
     Dates: start: 19990301, end: 19991001
  3. MEDROXYPROGESTERONE ACETATE [Suspect]
     Indication: HORMONE REPLACEMENT THERAPY
     Dosage: UNK
     Dates: start: 20010101, end: 20020301
  4. PREMARIN [Suspect]
     Indication: HORMONE REPLACEMENT THERAPY
     Dosage: 0.625, 0.3
     Dates: start: 19940801, end: 20020301
  5. CYCRIN [Suspect]
     Indication: HORMONE REPLACEMENT THERAPY
     Dosage: 2.5 UNK, UNK
     Dates: start: 19991101, end: 20001201
  6. PREMPRO [Suspect]
     Indication: HORMONE REPLACEMENT THERAPY
     Dosage: 0.625.5, 0.625/2.5
     Dates: start: 20020401, end: 20030301
  7. ACTONEL [Concomitant]
     Indication: HYPERTENSION
     Dosage: UNK
     Dates: start: 19830301
  8. ACTONEL [Concomitant]
     Indication: OSTEOPOROSIS
  9. TENORMIN [Concomitant]
     Indication: HYPERTENSION
     Dosage: UNK
     Dates: start: 19960101

REACTIONS (1)
  - BREAST CANCER FEMALE [None]
